FAERS Safety Report 18856572 (Version 63)
Quarter: 2025Q4

REPORT INFORMATION
  Report Type: Report from Study
  Country: US (occurrence: US)
  Receive Date: 20210207
  Receipt Date: 20251229
  Transmission Date: 20260117
  Serious: Yes (Hospitalization, Other)
  Sender: TAKEDA
  Company Number: US-SHIRE-US202024901

PATIENT
  Age: 57 Year
  Sex: Female
  Weight: 75 kg

DRUGS (44)
  1. HUMAN IMMUNOGLOBULIN G\HYALURONIDASE RECOMBINANT HUMAN [Suspect]
     Active Substance: HUMAN IMMUNOGLOBULIN G\HYALURONIDASE (HUMAN RECOMBINANT)
     Indication: Primary immunodeficiency syndrome
     Dosage: 40 GRAM, Q3WEEKS
  2. HUMAN IMMUNOGLOBULIN G\HYALURONIDASE RECOMBINANT HUMAN [Suspect]
     Active Substance: HUMAN IMMUNOGLOBULIN G\HYALURONIDASE (HUMAN RECOMBINANT)
     Indication: Rheumatoid arthritis
     Dosage: 40 GRAM
  3. HUMAN IMMUNOGLOBULIN G\HYALURONIDASE RECOMBINANT HUMAN [Suspect]
     Active Substance: HUMAN IMMUNOGLOBULIN G\HYALURONIDASE (HUMAN RECOMBINANT)
     Indication: IgG deficiency
     Dosage: UNK
  4. HUMAN IMMUNOGLOBULIN G\HYALURONIDASE RECOMBINANT HUMAN [Suspect]
     Active Substance: HUMAN IMMUNOGLOBULIN G\HYALURONIDASE (HUMAN RECOMBINANT)
     Indication: Hypogammaglobulinaemia
     Dosage: 40 GRAM, Q3WEEKS
  5. HUMAN IMMUNOGLOBULIN G\HYALURONIDASE RECOMBINANT HUMAN [Suspect]
     Active Substance: HUMAN IMMUNOGLOBULIN G\HYALURONIDASE (HUMAN RECOMBINANT)
     Dosage: 40 GRAM
  6. TIRZEPATIDE [Suspect]
     Active Substance: TIRZEPATIDE
     Indication: Product used for unknown indication
     Dosage: UNK
  7. METFORMIN [Suspect]
     Active Substance: METFORMIN HYDROCHLORIDE
     Indication: Product used for unknown indication
     Dosage: UNK
  8. SODIUM CHLORIDE [Concomitant]
     Active Substance: SODIUM CHLORIDE
     Dosage: UNK
  9. ACETAMINOPHEN [Concomitant]
     Active Substance: ACETAMINOPHEN
     Dosage: UNK
  10. CLONIDINE HYDROCHLORIDE [Concomitant]
     Active Substance: CLONIDINE HYDROCHLORIDE
     Dosage: UNK
  11. TOBRAMYCIN SULFATE [Concomitant]
     Active Substance: TOBRAMYCIN SULFATE
     Dosage: UNK
  12. XOLAIR [Concomitant]
     Active Substance: OMALIZUMAB
     Dosage: UNK
  13. CEFDINIR [Concomitant]
     Active Substance: CEFDINIR
     Dosage: UNK
  14. LOVENOX [Concomitant]
     Active Substance: ENOXAPARIN SODIUM
     Dosage: UNK
  15. LIDOCAINE [Concomitant]
     Active Substance: LIDOCAINE
     Dosage: UNK
  16. HYDROCHLOROTHIAZIDE [Concomitant]
     Active Substance: HYDROCHLOROTHIAZIDE
     Dosage: UNK
  17. DIPHENHYDRAMINE HYDROCHLORIDE [Concomitant]
     Active Substance: DIPHENHYDRAMINE HYDROCHLORIDE
     Dosage: 50 MILLIGRAM
  18. ALPHA LIPOIC ACID [Concomitant]
     Active Substance: .ALPHA.-LIPOIC ACID
     Dosage: UNK
  19. UBRELVY [Concomitant]
     Active Substance: UBROGEPANT
     Dosage: UNK
  20. ENOXAPARIN [Concomitant]
     Active Substance: ENOXAPARIN
     Indication: Cardiovascular disorder
     Dosage: UNK
  21. RECLAST [Concomitant]
     Active Substance: ZOLEDRONIC ACID
     Dosage: UNK
  22. EPINEPHRINE [Concomitant]
     Active Substance: EPINEPHRINE
     Dosage: UNK
  23. TYMLOS [Concomitant]
     Active Substance: ABALOPARATIDE
     Dosage: UNK
  24. ONDANSETRON [Concomitant]
     Active Substance: ONDANSETRON
     Dosage: UNK
  25. HYDROXYZINE HYDROCHLORIDE [Concomitant]
     Active Substance: HYDROXYZINE HYDROCHLORIDE
     Dosage: UNK
  26. OMALIZUMAB [Concomitant]
     Active Substance: OMALIZUMAB
     Dosage: UNK
  27. OXYCODONE [Concomitant]
     Active Substance: OXYCODONE
     Dosage: UNK
  28. MIEBO [Concomitant]
     Active Substance: PERFLUOROHEXYLOCTANE
     Dosage: UNK
  29. PREGABALIN [Concomitant]
     Active Substance: PREGABALIN
     Dosage: UNK
  30. WELLBUTRIN XL [Concomitant]
     Active Substance: BUPROPION HYDROCHLORIDE
     Dosage: UNK
  31. RAMELTEON [Concomitant]
     Active Substance: RAMELTEON
     Dosage: UNK
  32. ELIQUIS [Concomitant]
     Active Substance: APIXABAN
     Dosage: UNK
  33. TRELEGY ELLIPTA [Concomitant]
     Active Substance: FLUTICASONE FUROATE\UMECLIDINIUM BROMIDE\VILANTEROL TRIFENATATE
     Dosage: UNK
  34. ROSUVASTATIN CALCIUM [Concomitant]
     Active Substance: ROSUVASTATIN CALCIUM
     Dosage: UNK
  35. NEPAFENAC [Concomitant]
     Active Substance: NEPAFENAC
     Dosage: UNK
  36. LEVOTHYROXINE SODIUM [Concomitant]
     Active Substance: LEVOTHYROXINE SODIUM
     Dosage: UNK
  37. EYSUVIS [Concomitant]
     Active Substance: LOTEPREDNOL ETABONATE
     Dosage: UNK
  38. MONTELUKAST SODIUM [Concomitant]
     Active Substance: MONTELUKAST SODIUM
     Dosage: UNK
  39. MIDODRINE HYDROCHLORIDE [Concomitant]
     Active Substance: MIDODRINE HYDROCHLORIDE
     Indication: Blood pressure measurement
     Dosage: 5 MILLIGRAM, TID
  40. SYMPROIC [Concomitant]
     Active Substance: NALDEMEDINE TOSYLATE
     Dosage: UNK
  41. PREDNISOLONE [Concomitant]
     Active Substance: PREDNISOLONE
     Dosage: UNK
  42. TRAZODONE HCL [Concomitant]
     Active Substance: TRAZODONE HYDROCHLORIDE
     Dosage: UNK
  43. TOBRAMYCIN [Concomitant]
     Active Substance: TOBRAMYCIN
     Dosage: UNK
  44. OXYCODONE HYDROCHLORIDE [Concomitant]
     Active Substance: OXYCODONE HYDROCHLORIDE
     Dosage: UNK

REACTIONS (86)
  - Urogenital fistula [Unknown]
  - Muscle haemorrhage [Unknown]
  - Arterial haemorrhage [Unknown]
  - Coagulopathy [Unknown]
  - Vesical fistula [Unknown]
  - Bladder perforation [Unknown]
  - Spinal disorder [Unknown]
  - Joint injury [Unknown]
  - Urinary tract infection [Not Recovered/Not Resolved]
  - Foot fracture [Unknown]
  - Muscle strain [Unknown]
  - Haemoglobin decreased [Unknown]
  - Intestinal fistula infection [Unknown]
  - Gastrointestinal fistula [Unknown]
  - Autoimmune disorder [Unknown]
  - Pneumonia [Not Recovered/Not Resolved]
  - Cataract [Unknown]
  - Ulcerative keratitis [Unknown]
  - Cardiac ventricular thrombosis [Unknown]
  - Pulmonary thrombosis [Unknown]
  - Thrombosis [Unknown]
  - Spinal fusion fracture [Unknown]
  - Scar [Unknown]
  - Lymphatic disorder [Unknown]
  - Upper respiratory tract infection [Unknown]
  - Cellulitis [Not Recovered/Not Resolved]
  - Sleep disorder [Unknown]
  - Vitamin C deficiency [Unknown]
  - Productive cough [Unknown]
  - Injection site bruising [Unknown]
  - Infection [Not Recovered/Not Resolved]
  - Blood pressure inadequately controlled [Unknown]
  - Dust allergy [Unknown]
  - Multiple allergies [Unknown]
  - Peripheral swelling [Unknown]
  - Lung disorder [Unknown]
  - Sinusitis [Not Recovered/Not Resolved]
  - Dermatitis contact [Unknown]
  - Blister [Unknown]
  - Alopecia [Unknown]
  - Ear infection [Unknown]
  - Product leakage [Unknown]
  - Pain [Unknown]
  - Inappropriate schedule of product administration [Unknown]
  - Seasonal allergy [Unknown]
  - COVID-19 [Unknown]
  - Rotator cuff syndrome [Unknown]
  - Allergy to plants [Unknown]
  - Musculoskeletal discomfort [Unknown]
  - Product dose omission issue [Unknown]
  - Procedural pain [Unknown]
  - Product dose omission in error [Unknown]
  - Visual impairment [Not Recovered/Not Resolved]
  - Post procedural complication [Not Recovered/Not Resolved]
  - Drug intolerance [Unknown]
  - Cough [Unknown]
  - Blood pressure decreased [Unknown]
  - Malaise [Unknown]
  - Hypersensitivity [Unknown]
  - Tooth abscess [Unknown]
  - Cardiac murmur [Unknown]
  - Road traffic accident [Unknown]
  - Viral infection [Unknown]
  - Illness [Unknown]
  - Dehydration [Unknown]
  - Nasopharyngitis [Unknown]
  - Eye infection [Unknown]
  - Lymphoedema [Unknown]
  - Weight decreased [Unknown]
  - Blood glucose decreased [Unknown]
  - Needle issue [Unknown]
  - Urinary incontinence [Unknown]
  - Rib fracture [Unknown]
  - Respiratory tract infection [Not Recovered/Not Resolved]
  - Psoriasis [Unknown]
  - Hypoaesthesia [Unknown]
  - Balance disorder [Unknown]
  - Back pain [Unknown]
  - Migraine [Unknown]
  - Fatigue [Unknown]
  - Ocular discomfort [Unknown]
  - Urticaria [Unknown]
  - Infusion site pain [Unknown]
  - Infusion site erythema [Unknown]
  - Osteoporosis [Unknown]
  - Sneezing [Unknown]

NARRATIVE: CASE EVENT DATE: 20221206
